FAERS Safety Report 8175230-6 (Version None)
Quarter: 2012Q1

REPORT INFORMATION
  Report Type: 
  Country: None (occurrence: None)
  Receive Date: 20120227
  Receipt Date: 20120216
  Transmission Date: 20120608
  Serious: Yes (Other)
  Sender: FDA-Public Use
  Company Number: CIP09001037

PATIENT
  Age: 38 Year
  Sex: Female

DRUGS (4)
  1. ALFAROL (ALFACALCIDOL) [Concomitant]
  2. CALCIUIM (CALCIUM) [Concomitant]
  3. ACTONEL [Suspect]
     Indication: OSTEITIS DEFORMANS
     Dosage: 17.5 MG ONCE DAILY, ORAL
     Route: 048
     Dates: start: 20090406, end: 20090408
  4. ACTONEL [Suspect]
     Indication: OSTEITIS DEFORMANS
     Dosage: 17.5 MG ONCE DAILY, ORAL
     Route: 048
     Dates: end: 20090403

REACTIONS (4)
  - HYPOAESTHESIA [None]
  - HYPOCALCAEMIA [None]
  - BLOOD CALCIUM DECREASED [None]
  - TETANY [None]
